FAERS Safety Report 14984574 (Version 8)
Quarter: 2019Q3

REPORT INFORMATION
  Report Type: Spontaneous
  Country: US (occurrence: US)
  Receive Date: 20180607
  Receipt Date: 20190920
  Transmission Date: 20191004
  Serious: Yes (Other)
  Sender: FDA-Public Use
  Company Number: PHEH2018US022334

PATIENT
  Sex: Female

DRUGS (3)
  1. ZOFRAN [Suspect]
     Active Substance: ONDANSETRON HYDROCHLORIDE
     Dosage: 04 MG, Q6H
     Route: 042
     Dates: start: 20120719, end: 20120719
  2. ZOFRAN [Suspect]
     Active Substance: ONDANSETRON HYDROCHLORIDE
     Indication: HYPEREMESIS GRAVIDARUM
     Dosage: 4 MG, UNK
     Route: 048
     Dates: start: 20111201, end: 20120705
  3. ZOFRAN [Suspect]
     Active Substance: ONDANSETRON HYDROCHLORIDE
     Indication: MORNING SICKNESS
     Dosage: 4 MG, UNK
     Route: 042
     Dates: start: 20111206, end: 20111206

REACTIONS (5)
  - Maternal exposure during pregnancy [Unknown]
  - Injury [Unknown]
  - Emotional distress [Unknown]
  - Product use in unapproved indication [Unknown]
  - Chronic hepatitis B [Unknown]
